FAERS Safety Report 6549787-2 (Version None)
Quarter: 2010Q1

REPORT INFORMATION
  Report Type: 
  Country: None (occurrence: None)
  Receive Date: 20100125
  Receipt Date: 20100118
  Transmission Date: 20100710
  Serious: Yes (Hospitalization, Other)
  Sender: FDA-Public Use
  Company Number: US-TEVA-221231USA

PATIENT
  Age: 32 Year
  Sex: Female

DRUGS (2)
  1. CISPLATIN 1 MG/ML, 10MG/ML, 20MG/ML, 50 MG/ML + 100MG/ML [Suspect]
     Indication: MESOTHELIOMA
  2. DEXAMETHASONE [Suspect]

REACTIONS (1)
  - REVERSIBLE POSTERIOR LEUKOENCEPHALOPATHY SYNDROME [None]
